FAERS Safety Report 8850832 (Version 2)
Quarter: 2012Q4

REPORT INFORMATION
  Report Type: 
  Country: CA (occurrence: CA)
  Receive Date: 20121019
  Receipt Date: 20121105
  Transmission Date: 20130627
  Serious: Yes (Hospitalization)
  Sender: FDA-Public Use
  Company Number: CA-ASTELLAS-2012US009731

PATIENT
  Age: 50 Year

DRUGS (1)
  1. PROGRAF [Suspect]
     Indication: RENAL TRANSPLANT
     Dosage: UNK
     Route: 065
     Dates: start: 201008

REACTIONS (3)
  - Pulmonary hypertension [Unknown]
  - Oedema peripheral [Unknown]
  - Kidney transplant rejection [Unknown]
